FAERS Safety Report 16116619 (Version 1)
Quarter: 2019Q1

REPORT INFORMATION
  Report Type: Spontaneous
  Country: IT (occurrence: IT)
  Receive Date: 20190326
  Receipt Date: 20190326
  Transmission Date: 20190418
  Serious: Yes (Other)
  Sender: FDA-Public Use
  Company Number: IT-ACCORD-115634

PATIENT
  Age: 60 Year
  Sex: Female
  Weight: 72 kg

DRUGS (9)
  1. HYDROCHLOROTHIAZIDE/LISINOPRIL [Concomitant]
  2. INSULIN [Concomitant]
     Active Substance: INSULIN NOS
  3. GEMCITABINE/GEMCITABINE HYDROCHLORIDE [Suspect]
     Active Substance: GEMCITABINE\GEMCITABINE HYDROCHLORIDE
     Indication: SMALL CELL LUNG CANCER
     Route: 042
     Dates: start: 20180522
  4. TOTALIP [Concomitant]
     Active Substance: ATORVASTATIN
  5. RANITIDINE. [Concomitant]
     Active Substance: RANITIDINE
  6. NEBIVOLOL. [Concomitant]
     Active Substance: NEBIVOLOL
  7. SOLDESAM [Concomitant]
     Active Substance: DEXAMETHASONE
  8. DUOPLAVIN [Concomitant]
     Active Substance: ASPIRIN\CLOPIDOGREL
  9. EUTIROX [Concomitant]
     Active Substance: LEVOTHYROXINE SODIUM

REACTIONS (2)
  - Abdominal pain [Recovering/Resolving]
  - Rectal haemorrhage [Recovering/Resolving]

NARRATIVE: CASE EVENT DATE: 20180704
